FAERS Safety Report 5754366-0 (Version None)
Quarter: 2008Q2

REPORT INFORMATION
  Report Type: 
  Country: None (occurrence: None)
  Receive Date: 20080530
  Receipt Date: 20080522
  Transmission Date: 20081010
  Serious: Yes (Disabling, Other)
  Sender: FDA-Public Use
  Company Number: GB-PFIZER INC-2008026573

PATIENT
  Age: 31 Year
  Sex: Female

DRUGS (8)
  1. NIFEDIPINE [Suspect]
     Indication: INSOMNIA
     Route: 048
  2. AMITRIPTYLINE HCL [Interacting]
     Indication: DEPRESSION
     Route: 048
     Dates: start: 20060701, end: 20080204
  3. AMITRIPTYLINE HCL [Interacting]
     Indication: INSOMNIA
  4. CALCICHEW [Interacting]
     Indication: OSTEOPENIA
     Dosage: FREQ:QD
  5. MICROGYNON [Interacting]
     Indication: CONTRACEPTION
     Route: 048
  6. PROVIGIL [Interacting]
     Indication: MULTIPLE SCLEROSIS
     Dates: start: 20060201, end: 20060301
  7. PROVIGIL [Interacting]
     Indication: FATIGUE
  8. VITAMIN CAP [Concomitant]

REACTIONS (6)
  - ARTHRALGIA [None]
  - DRUG INTERACTION [None]
  - IMPAIRED WORK ABILITY [None]
  - JOINT SWELLING [None]
  - LUPUS-LIKE SYNDROME [None]
  - RASH ERYTHEMATOUS [None]
